FAERS Safety Report 19762276 (Version 1)
Quarter: 2021Q3

REPORT INFORMATION
  Report Type: Spontaneous
  Country: JP (occurrence: JP)
  Receive Date: 20210827
  Receipt Date: 20210827
  Transmission Date: 20211014
  Serious: Yes (Hospitalization)
  Sender: FDA-Public Use
  Company Number: JP-PFIZER INC-202100966003

PATIENT
  Age: 87 Year
  Sex: Male

DRUGS (8)
  1. OLOPATADINE HYDROCHLORIDE. [Concomitant]
     Active Substance: OLOPATADINE HYDROCHLORIDE
     Dosage: UNK
  2. DAIKENCHUTO [Concomitant]
     Active Substance: HERBALS
     Dosage: UNK
  3. LANSOPRAZOLE. [Concomitant]
     Active Substance: LANSOPRAZOLE
     Dosage: UNK
  4. SILODOSIN. [Concomitant]
     Active Substance: SILODOSIN
     Dosage: UNK
  5. CELECOXIB. [Concomitant]
     Active Substance: CELECOXIB
     Dosage: UNK
  6. ESTRACYT [Suspect]
     Active Substance: ESTRAMUSTINE
     Indication: PROSTATE CANCER
     Dosage: 313.4 MG
     Route: 048
     Dates: start: 20210621
  7. ONETRAM [Concomitant]
     Active Substance: TRAMADOL HYDROCHLORIDE
     Indication: ANALGESIC THERAPY
     Dosage: 100 MG
     Dates: start: 20201030
  8. MAGMITT [Concomitant]
     Active Substance: MAGNESIUM OXIDE
     Dosage: UNK

REACTIONS (5)
  - Vomiting [Unknown]
  - Dementia [Unknown]
  - Neoplasm progression [Unknown]
  - Diarrhoea [Unknown]
  - Decreased appetite [Unknown]

NARRATIVE: CASE EVENT DATE: 202107
